FAERS Safety Report 8569492-0 (Version None)
Quarter: 2012Q3

REPORT INFORMATION
  Report Type: 
  Country: None (occurrence: None)
  Receive Date: 20120803
  Receipt Date: 20120126
  Transmission Date: 20120928
  Serious: No
  Sender: FDA-Public Use
  Company Number: US-ABBOTT-12P-163-0898464-00

PATIENT
  Sex: Male
  Weight: 134.84 kg

DRUGS (7)
  1. MELAXICAM [Concomitant]
     Indication: PRODUCT USED FOR UNKNOWN INDICATION
  2. NIASPAN [Suspect]
     Indication: BLOOD CHOLESTEROL ABNORMAL
     Dosage: ONCE DAILY AT BEDTIME
     Dates: start: 20100101, end: 20120116
  3. TRILIPIX [Concomitant]
     Indication: PRODUCT USED FOR UNKNOWN INDICATION
  4. LISINOPRIL [Concomitant]
     Indication: PRODUCT USED FOR UNKNOWN INDICATION
  5. ALLOPURINOL [Concomitant]
     Indication: PRODUCT USED FOR UNKNOWN INDICATION
  6. SIMVASTATIN [Concomitant]
     Indication: PRODUCT USED FOR UNKNOWN INDICATION
  7. HYDROCHLORITHIZIDE [Concomitant]
     Indication: PRODUCT USED FOR UNKNOWN INDICATION

REACTIONS (5)
  - HOT FLUSH [None]
  - PRURITUS [None]
  - PAIN [None]
  - ERYTHEMA [None]
  - FLUSHING [None]
